FAERS Safety Report 13498962 (Version 6)
Quarter: 2018Q2

REPORT INFORMATION
  Report Type: Spontaneous
  Country: KR (occurrence: KR)
  Receive Date: 20170501
  Receipt Date: 20180606
  Transmission Date: 20180711
  Serious: Yes (Death, Other)
  Sender: FDA-Public Use
  Company Number: KR-009507513-1704KOR014515

PATIENT
  Age: 42 Year
  Sex: Male
  Weight: 75 kg

DRUGS (41)
  1. PHARMORUBICIN [Concomitant]
     Active Substance: EPIRUBICIN
     Dosage: (STRENGTH: 10MG/10ML) 127 MG, ONCE, CYCLE 4
     Route: 042
     Dates: start: 20161122, end: 20161122
  2. DEXAMETHASONE SODIUM PHOSPHATE. [Concomitant]
     Active Substance: DEXAMETHASONE SODIUM PHOSPHATE
     Indication: PROPHYLAXIS OF NAUSEA AND VOMITING
     Dosage: (STRENGTH: 5MG/ML) 12 MG, QD
     Route: 042
     Dates: start: 20160917, end: 20160918
  3. DEXAMETHASONE SODIUM PHOSPHATE. [Concomitant]
     Active Substance: DEXAMETHASONE SODIUM PHOSPHATE
     Dosage: (STRENGTH: 5MG/ML) 12 MG, QD
     Route: 042
     Dates: start: 20161010, end: 20161011
  4. ALOXI [Concomitant]
     Active Substance: PALONOSETRON HYDROCHLORIDE
     Indication: PROPHYLAXIS OF NAUSEA AND VOMITING
     Dosage: 0.25 MG, ONCE
     Route: 042
     Dates: start: 20160917, end: 20160917
  5. ALOXI [Concomitant]
     Active Substance: PALONOSETRON HYDROCHLORIDE
     Dosage: 0.25 MG, ONCE
     Route: 042
     Dates: start: 20161010, end: 20161010
  6. LEVOFLOXACIN. [Concomitant]
     Active Substance: LEVOFLOXACIN
     Indication: PROPHYLAXIS
     Dosage: 750 MG, QD
     Route: 042
     Dates: start: 20161106, end: 20161109
  7. BLEOCIN [Concomitant]
     Active Substance: BLEOMYCIN SULFATE
     Dosage: (STRENGTH: 15MG/A) 27.3 MG, ONCE, CYCLE 4
     Route: 042
     Dates: start: 20161122, end: 20161126
  8. PHARMORUBICIN [Concomitant]
     Active Substance: EPIRUBICIN
     Indication: CHEMOTHERAPY
     Dosage: (STRENGTH: 10MG/10ML) 134 MG, ONCE, CYCLE 1
     Route: 042
     Dates: start: 20160917, end: 20160917
  9. ALOXI [Concomitant]
     Active Substance: PALONOSETRON HYDROCHLORIDE
     Dosage: 0.25 MG, ONCE
     Route: 042
     Dates: start: 20161031, end: 20161031
  10. MEGESTROL ACETATE. [Concomitant]
     Active Substance: MEGESTROL ACETATE
     Indication: DECREASED APPETITE
     Dosage: 5 ML, ONCE DAILY
     Route: 048
     Dates: start: 20160917, end: 20161114
  11. IRCODON [Concomitant]
     Active Substance: OXYCODONE HYDROCHLORIDE
     Indication: PAIN
     Dosage: 1 TABLET, FOUR TIMES A DAY
     Route: 048
     Dates: start: 20160908, end: 20160918
  12. BLEOCIN [Concomitant]
     Active Substance: BLEOMYCIN SULFATE
     Dosage: (STRENGTH: 15MG/A) 29.1 MG, ONCE, CYCLE 3
     Route: 042
     Dates: start: 20161031, end: 20161104
  13. PHARMORUBICIN [Concomitant]
     Active Substance: EPIRUBICIN
     Dosage: (STRENGTH: 10MG/10ML) 134 MG, ONCE, CYCLE 2
     Route: 042
     Dates: start: 20161010, end: 20161010
  14. TARGIN [Concomitant]
     Active Substance: NALOXONE HYDROCHLORIDE\OXYCODONE HYDROCHLORIDE
     Indication: PAIN
     Dosage: 1 TABLET, TWICE A DAY
     Route: 048
     Dates: start: 20160911, end: 20161130
  15. TYLENOL [Concomitant]
     Active Substance: ACETAMINOPHEN
     Indication: PAIN
     Dosage: 1 TABLET, THREE TIMES A DAY
     Route: 048
     Dates: start: 20161014, end: 20161015
  16. EMEND (FOSAPREPITANT DIMEGLUMINE) [Suspect]
     Active Substance: FOSAPREPITANT DIMEGLUMINE
     Indication: PROPHYLAXIS OF NAUSEA AND VOMITING
     Dosage: 150 MG, ONCE
     Route: 042
     Dates: start: 20160917, end: 20160917
  17. EMEND (FOSAPREPITANT DIMEGLUMINE) [Suspect]
     Active Substance: FOSAPREPITANT DIMEGLUMINE
     Dosage: 150 MG, ONCE
     Route: 042
     Dates: start: 20161031, end: 20161031
  18. PHARMORUBICIN [Concomitant]
     Active Substance: EPIRUBICIN
     Dosage: (STRENGTH: 10MG/10ML) 134 MG, ONCE, CYCLE 3
     Route: 042
     Dates: start: 20161031, end: 20161031
  19. DEXAMETHASONE SODIUM PHOSPHATE. [Concomitant]
     Active Substance: DEXAMETHASONE SODIUM PHOSPHATE
     Dosage: (STRENGTH: 5MG/ML) 8 MG, QD
     Route: 042
     Dates: start: 20161012, end: 20161013
  20. ALOXI [Concomitant]
     Active Substance: PALONOSETRON HYDROCHLORIDE
     Dosage: 0.25 MG, ONCE
     Route: 042
     Dates: start: 20161122, end: 20161122
  21. TYLENOL [Concomitant]
     Active Substance: ACETAMINOPHEN
     Dosage: 1 TABLET, THREE TIMES A DAY
     Route: 048
     Dates: start: 20161105, end: 20161108
  22. BLEOCIN [Concomitant]
     Active Substance: BLEOMYCIN SULFATE
     Indication: CHEMOTHERAPY
     Dosage: (STRENGTH: 15MG/A) 29.1 MG, ONCE, CYCLE 1
     Route: 042
     Dates: start: 20160917, end: 20160921
  23. CISPLATIN. [Concomitant]
     Active Substance: CISPLATIN
     Indication: CHEMOTHERAPY
     Dosage: 134 MG, ONCE, CYCLE 1
     Route: 042
     Dates: start: 20160917, end: 20160917
  24. CISPLATIN. [Concomitant]
     Active Substance: CISPLATIN
     Dosage: 134 MG, ONCE, CYCLE 3
     Route: 042
     Dates: start: 20161031, end: 20161031
  25. CISPLATIN. [Concomitant]
     Active Substance: CISPLATIN
     Dosage: 134 MG, ONCE, CYCLE 4
     Route: 042
     Dates: start: 20161122, end: 20161122
  26. DEXAMETHASONE SODIUM PHOSPHATE. [Concomitant]
     Active Substance: DEXAMETHASONE SODIUM PHOSPHATE
     Dosage: (STRENGTH: 5MG/ML) 8 MG, QD
     Route: 042
     Dates: start: 20160919, end: 20160920
  27. DEXAMETHASONE SODIUM PHOSPHATE. [Concomitant]
     Active Substance: DEXAMETHASONE SODIUM PHOSPHATE
     Dosage: (STRENGTH: 5MG/ML) 8 MG, QD
     Route: 042
     Dates: start: 20161102, end: 20161104
  28. DENOGAN [Concomitant]
     Active Substance: PROPACETAMOL HYDROCHLORIDE
     Dosage: 1 G, ONCE
     Route: 042
     Dates: start: 20161014, end: 20161014
  29. DENOGAN [Concomitant]
     Active Substance: PROPACETAMOL HYDROCHLORIDE
     Dosage: 1 G, TWICE DAILY
     Route: 042
     Dates: start: 20161105, end: 20161105
  30. PANTOLINE TABLETS [Concomitant]
     Indication: PROPHYLAXIS AGAINST GASTROINTESTINAL ULCER
     Dosage: 1 TABLET, ONCE DAILY
     Route: 048
     Dates: start: 20160917, end: 20161201
  31. EMEND (FOSAPREPITANT DIMEGLUMINE) [Suspect]
     Active Substance: FOSAPREPITANT DIMEGLUMINE
     Dosage: 150 MG, ONCE
     Route: 042
     Dates: start: 20161010, end: 20161010
  32. CISPLATIN. [Concomitant]
     Active Substance: CISPLATIN
     Dosage: 134 MG, ONCE, CYCLE 2
     Route: 042
     Dates: start: 20161010, end: 20161010
  33. EMEND (FOSAPREPITANT DIMEGLUMINE) [Suspect]
     Active Substance: FOSAPREPITANT DIMEGLUMINE
     Dosage: 150 MG, ONCE
     Route: 042
     Dates: start: 20161122, end: 20161122
  34. BLEOCIN [Concomitant]
     Active Substance: BLEOMYCIN SULFATE
     Dosage: (STRENGTH: 15MG/A) 29.1 MG, ONCE, CYCLE 2
     Route: 042
     Dates: start: 20161010, end: 20161014
  35. DEXAMETHASONE SODIUM PHOSPHATE. [Concomitant]
     Active Substance: DEXAMETHASONE SODIUM PHOSPHATE
     Dosage: (STRENGTH: 5MG/ML) 12 MG, QD
     Route: 042
     Dates: start: 20161031, end: 20161101
  36. DEXAMETHASONE SODIUM PHOSPHATE. [Concomitant]
     Active Substance: DEXAMETHASONE SODIUM PHOSPHATE
     Dosage: (STRENGTH: 5MG/ML) 12 MG, QD
     Route: 042
     Dates: start: 20161122, end: 20161123
  37. DEXAMETHASONE SODIUM PHOSPHATE. [Concomitant]
     Active Substance: DEXAMETHASONE SODIUM PHOSPHATE
     Dosage: (STRENGTH: 5MG/ML) 8 MG, QD
     Route: 042
     Dates: start: 20161124, end: 20161126
  38. CEFTRIAXONE. [Concomitant]
     Active Substance: CEFTRIAXONE
     Indication: PROPHYLAXIS
     Dosage: 2 G, ONCE DAILY
     Route: 042
     Dates: start: 20161114, end: 20161116
  39. DENOGAN [Concomitant]
     Active Substance: PROPACETAMOL HYDROCHLORIDE
     Indication: PAIN
     Dosage: 1 G, TWICE DAILY
     Route: 042
     Dates: start: 20160921, end: 20160921
  40. TARGIN [Concomitant]
     Active Substance: NALOXONE HYDROCHLORIDE\OXYCODONE HYDROCHLORIDE
     Indication: PAIN
     Dosage: 1 TABLET, TWICE A DAY
     Route: 048
     Dates: start: 20160908, end: 20161130
  41. IRCODON [Concomitant]
     Active Substance: OXYCODONE HYDROCHLORIDE
     Dosage: 1 TABLET, FOUR TIMES A DAY
     Route: 048
     Dates: start: 20161114, end: 20161122

REACTIONS (4)
  - Neutropenia [Recovered/Resolved]
  - Otorrhoea [Not Recovered/Not Resolved]
  - Pneumonia [Fatal]
  - Cytopenia [Not Recovered/Not Resolved]

NARRATIVE: CASE EVENT DATE: 20161114
